FAERS Safety Report 24033650 (Version 2)
Quarter: 2024Q3

REPORT INFORMATION
  Report Type: Report from Study
  Country: US (occurrence: US)
  Receive Date: 20240701
  Receipt Date: 20240710
  Transmission Date: 20241016
  Serious: No
  Sender: ROCHE
  Company Number: US-ROCHE-3544673

PATIENT
  Age: 11 Year
  Sex: Male
  Weight: 43.4 kg

DRUGS (5)
  1. EVRYSDI [Suspect]
     Active Substance: RISDIPLAM
     Indication: Spinal muscular atrophy
     Route: 048
  2. EPIPEN JR [Concomitant]
     Active Substance: EPINEPHRINE
     Route: 030
  3. MIRALAX [Concomitant]
     Active Substance: POLYETHYLENE GLYCOL 3350
     Indication: Constipation
     Route: 048
  4. SPINRAZA [Concomitant]
     Active Substance: NUSINERSEN
     Route: 029
     Dates: start: 20200218, end: 20220501
  5. EMLA [Concomitant]
     Active Substance: LIDOCAINE\PRILOCAINE

REACTIONS (4)
  - Asthenia [Not Recovered/Not Resolved]
  - Hypopnoea [Unknown]
  - Heart rate irregular [Unknown]
  - Scoliosis [Unknown]

NARRATIVE: CASE EVENT DATE: 20230101
